FAERS Safety Report 16927366 (Version 2)
Quarter: 2019Q4

REPORT INFORMATION
  Report Type: Spontaneous
  Country: US (occurrence: US)
  Receive Date: 20191016
  Receipt Date: 20191213
  Transmission Date: 20200122
  Serious: Yes (Hospitalization, Disabling, Other)
  Sender: FDA-Public Use
  Company Number: US-009507513-0907USA00160

PATIENT
  Sex: Female
  Weight: 55.78 kg

DRUGS (8)
  1. FOSAMAX [Suspect]
     Active Substance: ALENDRONATE SODIUM
     Dosage: 10 MG, UNK
     Route: 048
     Dates: start: 19960404, end: 20020121
  2. VITAMIN D (UNSPECIFIED) [Concomitant]
     Active Substance: VITAMIN D NOS
     Dates: start: 1995
  3. METICORTEN [Concomitant]
     Active Substance: PREDNISONE
     Indication: PEMPHIGUS
     Dates: start: 1959
  4. FOSAMAX [Suspect]
     Active Substance: ALENDRONATE SODIUM
     Indication: OSTEOPOROSIS
     Dosage: 70 MG, UNK
     Route: 048
     Dates: start: 19951027, end: 20051005
  5. CALCIUM (UNSPECIFIED) [Concomitant]
     Active Substance: CALCIUM
     Dates: start: 1995
  6. FOSAMAX [Suspect]
     Active Substance: ALENDRONATE SODIUM
     Dosage: 70 MG, UNK
     Route: 048
     Dates: start: 20020122, end: 20031004
  7. CORTICOSTEROIDS (UNSPECIFIED) [Concomitant]
     Active Substance: UNSPECIFIED INGREDIENT
     Dates: start: 1961
  8. ESTROGEN NOS [Concomitant]
     Active Substance: ESTROGENS
     Indication: MENOPAUSE
     Dates: start: 1973, end: 2001

REACTIONS (54)
  - Osteoporosis [Not Recovered/Not Resolved]
  - Stress fracture [Unknown]
  - Femur fracture [Unknown]
  - Femur fracture [Unknown]
  - Musculoskeletal chest pain [Unknown]
  - Fall [Unknown]
  - Skin lesion [Unknown]
  - Leukocytosis [Not Recovered/Not Resolved]
  - Femur fracture [Unknown]
  - Low turnover osteopathy [Unknown]
  - Osteonecrosis [Unknown]
  - Road traffic accident [Unknown]
  - Gastroenteritis viral [Unknown]
  - Dysphagia [Unknown]
  - Joint effusion [Unknown]
  - Fall [Unknown]
  - Upper limb fracture [Unknown]
  - Osteopenia [Unknown]
  - Femur fracture [Unknown]
  - Femur fracture [Unknown]
  - Upper limb fracture [Unknown]
  - Bone disorder [Unknown]
  - Arthralgia [Unknown]
  - Ankle fracture [Unknown]
  - Foot fracture [Unknown]
  - Atypical femur fracture [Unknown]
  - Cataract [Not Recovered/Not Resolved]
  - Pemphigus [Unknown]
  - Osteoarthritis [Unknown]
  - Stress fracture [Unknown]
  - Nausea [Unknown]
  - Pain in extremity [Unknown]
  - Type 2 diabetes mellitus [Unknown]
  - Ulna fracture [Unknown]
  - Foot fracture [Recovering/Resolving]
  - Head injury [Unknown]
  - Bone pain [Not Recovered/Not Resolved]
  - Musculoskeletal pain [Not Recovered/Not Resolved]
  - Osteoarthritis [Unknown]
  - Adrenal insufficiency [Not Recovered/Not Resolved]
  - Syncope [Unknown]
  - Femur fracture [Unknown]
  - Foot fracture [Unknown]
  - Dyspnoea [Unknown]
  - Dermatitis contact [Unknown]
  - Rib fracture [Unknown]
  - Iron deficiency [Unknown]
  - Dysphonia [Unknown]
  - Osteoarthritis [Unknown]
  - Fall [Unknown]
  - Neutrophil count increased [Unknown]
  - Extraskeletal ossification [Unknown]
  - Thyroiditis [Not Recovered/Not Resolved]
  - Pancreatic mass [Unknown]

NARRATIVE: CASE EVENT DATE: 19960913
